FAERS Safety Report 4815553-9 (Version None)
Quarter: 2005Q4

REPORT INFORMATION
  Report Type: 
  Country: None (occurrence: None)
  Receive Date: 20051031
  Receipt Date: 20051021
  Transmission Date: 20060501
  Serious: Yes (Other)
  Sender: FDA-Public Use
  Company Number: US-AVENTIS-200518432US

PATIENT

DRUGS (1)
  1. KETEK [Suspect]
     Dosage: DOSE: NOT PROVIDED

REACTIONS (2)
  - DIZZINESS [None]
  - MYOCARDIAL INFARCTION [None]
